FAERS Safety Report 10544249 (Version 2)
Quarter: 2015Q1

REPORT INFORMATION
  Report Type: Spontaneous
  Country: CO (occurrence: None)
  Receive Date: 20141023
  Receipt Date: 20150306
  Transmission Date: 20150720
  Serious: Yes (Disabling, Other)
  Sender: FDA-Public Use
  Company Number: 2014-20540

PATIENT
  Age: 85 Year
  Sex: Female

DRUGS (1)
  1. EYLEA [Suspect]
     Active Substance: AFLIBERCEPT
     Indication: AGE-RELATED MACULAR DEGENERATION
     Dates: start: 20140527, end: 20140527

REACTIONS (3)
  - Eye infection [None]
  - Blindness [None]
  - Eye disorder [None]

NARRATIVE: CASE EVENT DATE: 20140527
